FAERS Safety Report 12312673 (Version 1)
Quarter: 2016Q2

REPORT INFORMATION
  Report Type: Report from Study
  Country: DK (occurrence: DK)
  Receive Date: 20160428
  Receipt Date: 20160428
  Transmission Date: 20160815
  Serious: Yes (Other)
  Sender: FDA-Public Use
  Company Number: DK-ACCORD-039958

PATIENT
  Age: 68 Year
  Sex: Female

DRUGS (20)
  1. FORMOTEROL [Concomitant]
     Active Substance: FORMOTEROL
     Indication: ASTHMA
     Dosage: 12 UG, UNK
     Route: 055
     Dates: start: 20130909
  2. OMEPRAZOLE. [Concomitant]
     Active Substance: OMEPRAZOLE
     Indication: ABDOMINAL PAIN UPPER
     Dosage: 40 L, UNK
     Route: 048
     Dates: start: 20150914
  3. GIONA EASYHALER [Concomitant]
     Indication: ASTHMA
     Dosage: 400 UG, UNK
     Route: 055
     Dates: start: 20130909
  4. MONTELUKAST ACTAVIS [Concomitant]
     Indication: ASTHMA
     Dosage: 10 MG, UNK
     Route: 048
     Dates: start: 20130527
  5. SOFRADEX [Concomitant]
     Active Substance: DEXAMETHASONE\FRAMYCETIN SULFATE\GRAMICIDIN
     Indication: PRODUCT USED FOR UNKNOWN INDICATION
     Dosage: 0.5 UNK, UNK
     Route: 065
     Dates: start: 20150617
  6. HYPOLOC [Concomitant]
     Indication: HYPERTENSION
     Dosage: 7.5 MG, UNK
     Route: 048
  7. PANTOPRAZOLE [Concomitant]
     Active Substance: PANTOPRAZOLE SODIUM
     Indication: GASTROOESOPHAGEAL REFLUX DISEASE
     Dosage: 40 MG, UNK
     Route: 048
     Dates: start: 20130506
  8. EPIRUBICIN [Suspect]
     Active Substance: EPIRUBICIN
     Indication: BREAST CANCER
     Dosage: INITIALLY RECEIVED INTRAVENOUS AT DOSE 100 MG/M2 ONCE IN EVERY THREE WEEKS FROM 11-MAY-2015.
     Route: 042
     Dates: start: 20150714
  9. DOCETAXEL. [Suspect]
     Active Substance: DOCETAXEL
     Indication: BREAST CANCER
     Dosage: 123 MG, EVERY WEEK
     Route: 042
     Dates: start: 20150804, end: 20150804
  10. PERTUZUMAB [Suspect]
     Active Substance: PERTUZUMAB
     Indication: BREAST CANCER
     Dosage: INITIALLY RECEIVED AT DOSE 840 MG, EVERY 3 WEEKS, THEN RECEIVED 420 MG EVERY TWO WEEKS.
     Route: 042
     Dates: start: 20150804
  11. TRASTUZUMAB [Suspect]
     Active Substance: TRASTUZUMAB
     Indication: BREAST CANCER
     Dosage: INITIALLY RECEIVED FROM 8 MG/KG, ONCE EVERY 3 WEEKS, THEN RECEIVED 345 MG ONCE EVERY 3 WEEKS.
     Route: 042
     Dates: start: 20150804
  12. ACIVIR [Concomitant]
     Active Substance: ACYCLOVIR
     Dosage: 50 MG, UNK
     Route: 061
     Dates: start: 20150617
  13. BUVENTOL EASYHALER [Concomitant]
     Active Substance: ALBUTEROL SULFATE
     Indication: ASTHMA
     Dosage: 200 UG, UNK
     Route: 055
     Dates: start: 20130508
  14. FLUOROURACIL. [Suspect]
     Active Substance: FLUOROURACIL
     Indication: BREAST CANCER
     Dosage: INITIALLY RECEIVED INTRAVENOUS AT DOSE 500 MG/M2 FROM 11-MAY-2015.
     Route: 042
     Dates: start: 20150714
  15. CETIRIZINE [Concomitant]
     Active Substance: CETIRIZINE HYDROCHLORIDE
     Indication: RASH
     Dosage: 10 MG, UNK
     Route: 048
     Dates: start: 20151116
  16. IBUPROFEN. [Concomitant]
     Active Substance: IBUPROFEN
     Indication: HEADACHE
     Dosage: 400 MG, UNK
     Route: 048
     Dates: start: 20150614
  17. IMODIUM [Concomitant]
     Active Substance: LOPERAMIDE HYDROCHLORIDE
     Indication: DIARRHOEA
     Dosage: 2 MG, UNK
     Dates: start: 20150812
  18. POTASSIUM [Concomitant]
     Active Substance: POTASSIUM
     Indication: PRODUCT USED FOR UNKNOWN INDICATION
     Route: 065
  19. PANODIL [Concomitant]
     Active Substance: ACETAMINOPHEN
     Indication: HEADACHE
     Dosage: 1 G, UNK
     Route: 048
     Dates: start: 20150614
  20. CYCLOPHOSPHAMIDE/CYCLOPHOSPHAMIDE MONOHYDRATE [Suspect]
     Active Substance: CYCLOPHOSPHAMIDE
     Indication: BREAST CANCER
     Dosage: INITIALLY RECEIVED INTRAVENOUS AT THE DOSE OF 600 MG/M2 FROM 11-MAY-2015.
     Route: 042
     Dates: start: 20150714

REACTIONS (1)
  - Cardiac failure [Unknown]

NARRATIVE: CASE EVENT DATE: 20160115
